FAERS Safety Report 6806929-9 (Version None)
Quarter: 2010Q2

REPORT INFORMATION
  Report Type: 
  Country: None (occurrence: None)
  Receive Date: 20100629
  Receipt Date: 20080619
  Transmission Date: 20101027
  Serious: Yes (Other)
  Sender: FDA-Public Use
  Company Number: US-PFIZER INC-2008051817

PATIENT
  Age: 70 Year
  Sex: Male

DRUGS (3)
  1. ZYVOX [Suspect]
     Indication: SKIN INFECTION
  2. SSRI [Concomitant]
  3. LEXAPRO [Concomitant]

REACTIONS (1)
  - SEROTONIN SYNDROME [None]
